FAERS Safety Report 10178122 (Version 1)
Quarter: 2014Q2

REPORT INFORMATION
  Report Type: Spontaneous
  Country: US (occurrence: US)
  Receive Date: 20140519
  Receipt Date: 20140519
  Transmission Date: 20141212
  Serious: No
  Sender: FDA-Public Use
  Company Number: US-009507513-1405USA005191

PATIENT
  Age: 67 Year
  Sex: Male

DRUGS (2)
  1. ZETIA [Suspect]
     Indication: BLOOD CHOLESTEROL
     Dosage: 10 MG, UNK
     Route: 048
     Dates: start: 20140501, end: 201405
  2. VITAMIN D (UNSPECIFIED) [Concomitant]

REACTIONS (2)
  - Therapy cessation [Recovered/Resolved]
  - Diarrhoea [Recovered/Resolved]
